FAERS Safety Report 14525880 (Version 1)
Quarter: 2018Q1

REPORT INFORMATION
  Report Type: Spontaneous
  Country: US (occurrence: US)
  Receive Date: 20180213
  Receipt Date: 20180213
  Transmission Date: 20180509
  Serious: Yes (Hospitalization, Other)
  Sender: FDA-Public Use
  Company Number: US-GILEAD-2018-0320581

PATIENT
  Age: 64 Year
  Sex: Male

DRUGS (3)
  1. TENOFOVIR DISOPROXIL FUMARATE. [Suspect]
     Active Substance: TENOFOVIR DISOPROXIL FUMARATE
     Indication: ACQUIRED IMMUNODEFICIENCY SYNDROME
     Dosage: UNK
     Route: 065
  2. DOLUTEGRAVIR [Concomitant]
     Active Substance: DOLUTEGRAVIR
     Indication: ACQUIRED IMMUNODEFICIENCY SYNDROME
  3. EMTRICITABINE [Suspect]
     Active Substance: EMTRICITABINE
     Indication: ACQUIRED IMMUNODEFICIENCY SYNDROME
     Dosage: UNK
     Route: 065

REACTIONS (2)
  - Immune reconstitution inflammatory syndrome [Unknown]
  - Lymphoma [Unknown]
